FAERS Safety Report 8879624 (Version 1)
Quarter: 2012Q4

REPORT INFORMATION
  Report Type: 
  Country: US (occurrence: US)
  Receive Date: 20121031
  Receipt Date: 20121031
  Transmission Date: 20130627
  Serious: Yes (Hospitalization)
  Sender: FDA-Public Use
  Company Number: US-GLAXOSMITHKLINE-A0858977A

PATIENT
  Sex: Male
  Weight: 113.6 kg

DRUGS (8)
  1. AVANDIA [Suspect]
     Indication: DIABETES MELLITUS
     Dosage: 4MG Per day
     Route: 048
     Dates: end: 2009
  2. GLUCOTROL [Concomitant]
  3. AVALIDE [Concomitant]
  4. LIPITOR [Concomitant]
  5. PREVACID [Concomitant]
  6. TIAZAC [Concomitant]
  7. ZETIA [Concomitant]
  8. CLARITIN [Concomitant]

REACTIONS (2)
  - Myocardial infarction [Unknown]
  - Cardiac failure congestive [Unknown]
